FAERS Safety Report 8192736-4 (Version None)
Quarter: 2012Q1

REPORT INFORMATION
  Report Type: 
  Country: None (occurrence: None)
  Receive Date: 20120308
  Receipt Date: 20120305
  Transmission Date: 20120608
  Serious: No
  Sender: FDA-Public Use
  Company Number: US-PFIZER INC-2012058790

PATIENT
  Sex: Female
  Weight: 48.073 kg

DRUGS (4)
  1. NORVASC [Concomitant]
     Dosage: 5 MG, 2X/DAY
  2. REVATIO [Suspect]
     Indication: OFF LABEL USE
     Dosage: 20 MG, 3X/DAY
     Route: 048
     Dates: start: 20120221
  3. PLAVIX [Concomitant]
     Dosage: 75 MG, 1X/DAY
  4. PREDNISONE [Concomitant]
     Dosage: UNK, 1X/DAY

REACTIONS (1)
  - THERAPEUTIC RESPONSE UNEXPECTED [None]
